FAERS Safety Report 7459854-7 (Version None)
Quarter: 2011Q2

REPORT INFORMATION
  Report Type: 
  Country: None (occurrence: None)
  Receive Date: 20110505
  Receipt Date: 20110422
  Transmission Date: 20111010
  Serious: No
  Sender: FDA-Public Use
  Company Number: US-ELI_LILLY_AND_COMPANY-US201104007222

PATIENT
  Sex: Female

DRUGS (2)
  1. ABILIFY [Concomitant]
  2. CYMBALTA [Suspect]
     Dosage: 1 DF, UNK

REACTIONS (1)
  - HEPATIC ENZYME INCREASED [None]
